FAERS Safety Report 6207708-6 (Version None)
Quarter: 2009Q2

REPORT INFORMATION
  Report Type: 
  Country: None (occurrence: None)
  Receive Date: 20090528
  Receipt Date: 20090526
  Transmission Date: 20091009
  Serious: Yes (Disabling)
  Sender: FDA-Public Use
  Company Number: US-MERCK-0905USA00029

PATIENT
  Age: 76 Year
  Sex: Male
  Weight: 112 kg

DRUGS (11)
  1. VYTORIN [Suspect]
     Indication: BLOOD CHOLESTEROL INCREASED
     Route: 048
     Dates: start: 20060101, end: 20060101
  2. ALBUTEROL [Concomitant]
     Route: 065
  3. ASPIRIN [Concomitant]
     Route: 065
  4. CYMBALTA [Concomitant]
     Route: 065
  5. DIOVAN [Concomitant]
     Route: 065
  6. FLEXERIL [Concomitant]
     Route: 048
  7. LANTUS [Concomitant]
     Route: 065
  8. LASIX [Concomitant]
     Route: 065
  9. NOVOLOG [Concomitant]
     Route: 065
  10. TRANXENE [Concomitant]
     Route: 065
  11. VICODIN [Concomitant]
     Route: 065

REACTIONS (2)
  - ATROPHY [None]
  - DIAPHRAGMATIC DISORDER [None]
